FAERS Safety Report 18919650 (Version 1)
Quarter: 2021Q1

REPORT INFORMATION
  Report Type: Report from Study
  Country: None (occurrence: US)
  Receive Date: 20210221
  Receipt Date: 20210221
  Transmission Date: 20210420
  Serious: Yes (Other)
  Sender: FDA-Public Use
  Company Number: US-ABBVIE-21K-163-3780025-00

PATIENT
  Sex: Female

DRUGS (1)
  1. HUMIRA [Suspect]
     Active Substance: ADALIMUMAB
     Indication: CROHN^S DISEASE
     Route: 058

REACTIONS (5)
  - Arthritis [Not Recovered/Not Resolved]
  - Internal haemorrhage [Unknown]
  - Rib fracture [Recovered/Resolved]
  - Fall [Unknown]
  - Spondylitis [Not Recovered/Not Resolved]
